FAERS Safety Report 9539014 (Version 3)
Quarter: 2013Q4

REPORT INFORMATION
  Report Type: Report from Study
  Country: US (occurrence: US)
  Receive Date: 20130920
  Receipt Date: 20131031
  Transmission Date: 20140711
  Serious: Yes (Other)
  Sender: FDA-Public Use
  Company Number: PHEH2013US018724

PATIENT
  Age: 45 Year
  Sex: Female

DRUGS (6)
  1. GILENYA [Suspect]
     Indication: MULTIPLE SCLEROSIS
     Dosage: 0.5 MG, QD
     Route: 048
     Dates: start: 20130828, end: 20130904
  2. COPAXONE [Concomitant]
  3. VICODIN [Concomitant]
     Dosage: 500 MG, EVERY 4-6 HOURS
  4. GABAPENTIN [Concomitant]
     Dosage: 300 MG, QID
  5. CEPHALEXIN [Concomitant]
  6. DOXEPIN [Concomitant]
     Indication: SLEEP DISORDER

REACTIONS (11)
  - Drug hypersensitivity [Recovering/Resolving]
  - Pharyngeal oedema [Recovering/Resolving]
  - Urticaria [Recovering/Resolving]
  - Bronchospasm [Recovering/Resolving]
  - Chest discomfort [Recovering/Resolving]
  - Inflammation [Recovering/Resolving]
  - Rash [Recovering/Resolving]
  - Headache [Recovering/Resolving]
  - Pharyngitis [Unknown]
  - Anxiety [Recovering/Resolving]
  - Bradycardia [Recovering/Resolving]
